FAERS Safety Report 13618171 (Version 2)
Quarter: 2017Q2

REPORT INFORMATION
  Report Type: Spontaneous
  Country: US (occurrence: US)
  Receive Date: 20170606
  Receipt Date: 20170616
  Transmission Date: 20170830
  Serious: No
  Sender: FDA-Public Use
  Company Number: US-LEXICON PHARMACEUTICALS, INC-17-1606-00139

PATIENT
  Sex: Female

DRUGS (15)
  1. VITAMIN D [Concomitant]
     Active Substance: CHOLECALCIFEROL
  2. NASONEX [Concomitant]
     Active Substance: MOMETASONE FUROATE
  3. ASPIRIN. [Concomitant]
     Active Substance: ASPIRIN
  4. TELOTRISTAT ETHYL [Suspect]
     Active Substance: TELOTRISTAT ETHYL
     Indication: CARCINOID SYNDROME
  5. MECLIZINE [Concomitant]
     Active Substance: MECLIZINE HYDROCHLORIDE
  6. TELOTRISTAT ETHYL [Suspect]
     Active Substance: TELOTRISTAT ETHYL
     Indication: CARCINOID TUMOUR
     Route: 048
     Dates: start: 201703
  7. FEXOFENADINE HCL [Suspect]
     Active Substance: FEXOFENADINE HYDROCHLORIDE
  8. ALBUTEROL. [Concomitant]
     Active Substance: ALBUTEROL
  9. EDARBI [Concomitant]
     Active Substance: AZILSARTAN KAMEDOXOMIL
  10. DEXILANT [Concomitant]
     Active Substance: DEXLANSOPRAZOLE
  11. DILTIAZEM HCL [Concomitant]
     Active Substance: DILTIAZEM HYDROCHLORIDE
  12. SOMATULINE DEPOT [Concomitant]
     Active Substance: LANREOTIDE ACETATE
  13. UBIDECARENONE [Concomitant]
     Active Substance: UBIDECARENONE
  14. FISH OIL [Concomitant]
     Active Substance: FISH OIL
  15. ROSUVASTATIN CALCIUM. [Concomitant]
     Active Substance: ROSUVASTATIN CALCIUM

REACTIONS (1)
  - Hepatic enzyme increased [Unknown]
